FAERS Safety Report 7459976-0 (Version None)
Quarter: 2011Q2

REPORT INFORMATION
  Report Type: 
  Country: None (occurrence: None)
  Receive Date: 20110505
  Receipt Date: 20110502
  Transmission Date: 20111010
  Serious: Yes (Other)
  Sender: FDA-Public Use
  Company Number: US-PFIZER INC-2011014297

PATIENT
  Sex: Male

DRUGS (2)
  1. CHANTIX [Suspect]
     Indication: SMOKING CESSATION THERAPY
     Dosage: 0.5MG AND 1MG
     Dates: start: 20071231, end: 20080229
  2. LISINOPRIL [Concomitant]
     Indication: HYPERTENSION
     Dosage: UNK
     Dates: start: 20070101

REACTIONS (6)
  - SUICIDAL IDEATION [None]
  - ANXIETY [None]
  - INSOMNIA [None]
  - DEPRESSION [None]
  - MENTAL DISORDER [None]
  - NIGHTMARE [None]
